FAERS Safety Report 5464363-0 (Version None)
Quarter: 2007Q3

REPORT INFORMATION
  Report Type: 
  Country: None (occurrence: None)
  Receive Date: 20070921
  Receipt Date: 20070911
  Transmission Date: 20080115
  Serious: Yes (Hospitalization)
  Sender: FDA-Public Use
  Company Number: JP-MERCK-0709USA02562

PATIENT
  Age: 60 Year
  Sex: Female

DRUGS (5)
  1. SINGULAIR [Suspect]
     Indication: ASTHMA
     Route: 048
     Dates: start: 20061101, end: 20070908
  2. THEOPHYLLINE [Suspect]
     Indication: ASTHMA
     Route: 048
     Dates: end: 20070908
  3. PULMICORT [Suspect]
     Indication: ASTHMA
     Dates: start: 20070908
  4. HOKUNALIN [Concomitant]
     Indication: ASTHMA
     Route: 061
  5. UNIPHYL [Concomitant]
     Indication: ASTHMA
     Route: 048

REACTIONS (2)
  - EOSINOPHIL COUNT INCREASED [None]
  - WHITE BLOOD CELL COUNT INCREASED [None]
